FAERS Safety Report 7273960 (Version 3)
Quarter: 2015Q1

REPORT INFORMATION
  Report Type: Spontaneous
  Country: CA (occurrence: CA)
  Receive Date: 20100209
  Receipt Date: 20150316
  Transmission Date: 20150721
  Serious: Yes (Death, Hospitalization, Other)
  Sender: FDA-Public Use
  Company Number: CA-AMGEN-QUU388812

PATIENT
  Age: 8 Year
  Sex: Female
  Weight: 21 kg

DRUGS (5)
  1. ENBREL [Suspect]
     Active Substance: ETANERCEPT
     Indication: JUVENILE IDIOPATHIC ARTHRITIS
     Dosage: 0.4 MG/KG, 2 TIMES/WK
     Route: 065
  2. OMEPRAZOLE. [Concomitant]
     Active Substance: OMEPRAZOLE
     Dosage: 10 MG, BID
  3. METHOTREXATE [Concomitant]
     Active Substance: METHOTREXATE
     Dosage: UNK
  4. PREDNISONE. [Suspect]
     Active Substance: PREDNISONE
     Indication: PRODUCT USED FOR UNKNOWN INDICATION
     Dosage: 5 MG, DAILY
     Route: 048
  5. INDOMETHACIN                       /00003805/ [Concomitant]
     Dosage: 100 MG, BID
     Route: 048

REACTIONS (29)
  - General physical health deterioration [Unknown]
  - Septic shock [Fatal]
  - Pseudomonal sepsis [Fatal]
  - Subcutaneous abscess [Unknown]
  - Extremity necrosis [Fatal]
  - Leg amputation [Fatal]
  - Acute kidney injury [Fatal]
  - Streptococcal infection [Unknown]
  - Cellulitis [Unknown]
  - Arm amputation [Fatal]
  - Respiratory failure [Fatal]
  - Confusional state [Unknown]
  - Pyrexia [Unknown]
  - Disseminated intravascular coagulation [Fatal]
  - Arthritis [Unknown]
  - Vomiting [Unknown]
  - Purpura fulminans [Fatal]
  - Lymphadenitis [Unknown]
  - Hepatitis [Fatal]
  - Cardiac failure acute [Fatal]
  - Diarrhoea [Unknown]
  - Staphylococcal infection [Unknown]
  - Cerebral oedema management [Fatal]
  - Rash erythematous [Unknown]
  - Brain oedema [Fatal]
  - Haemorrhage intracranial [Fatal]
  - Purpura [Unknown]
  - Streptococcal sepsis [Fatal]
  - Arthropod bite [Unknown]
